FAERS Safety Report 7455619-0 (Version None)
Quarter: 2011Q2

REPORT INFORMATION
  Report Type: 
  Country: None (occurrence: None)
  Receive Date: 20110503
  Receipt Date: 20110420
  Transmission Date: 20111010
  Serious: Yes (Death)
  Sender: FDA-Public Use
  Company Number: DE-ROCHE-774050

PATIENT
  Sex: Male
  Weight: 87 kg

DRUGS (4)
  1. PREDNISOLONE [Concomitant]
     Indication: PREMEDICATION
     Route: 042
     Dates: start: 20100930, end: 20110331
  2. FENISTIL (DIMETINDENE) [Concomitant]
     Indication: PREMEDICATION
     Route: 042
     Dates: start: 20100930, end: 20110331
  3. BEVACIZUMAB [Suspect]
     Indication: METASTATIC RENAL CELL CARCINOMA
     Dosage: CYCLE 9
     Route: 042
     Dates: start: 20100930, end: 20110331
  4. INTERFERON ALFA-2A [Suspect]
     Indication: METASTATIC RENAL CELL CARCINOMA
     Dosage: ON DAY 1, 3 AND 5 OF A CYCLE OF 14 DAYS
     Route: 058
     Dates: start: 20100930, end: 20110404

REACTIONS (1)
  - DEATH [None]
